FAERS Safety Report 8269539-5 (Version None)
Quarter: 2012Q2

REPORT INFORMATION
  Report Type: 
  Country: None (occurrence: None)
  Receive Date: 20120409
  Receipt Date: 20120326
  Transmission Date: 20120825
  Serious: Yes (Other)
  Sender: FDA-Public Use
  Company Number: ES-BAXTER-2012BAX000703

PATIENT
  Age: 4 Year
  Sex: Male

DRUGS (1)
  1. ADVATE [Suspect]
     Indication: HAEMARTHROSIS
     Route: 042
     Dates: start: 20120126, end: 20120201

REACTIONS (4)
  - CYANOSIS [None]
  - ERYTHEMA [None]
  - NAUSEA [None]
  - URTICARIA [None]
